FAERS Safety Report 7048609-3 (Version None)
Quarter: 2010Q4

REPORT INFORMATION
  Report Type: 
  Country: None (occurrence: None)
  Receive Date: 20101018
  Receipt Date: 20100608
  Transmission Date: 20110411
  Serious: Yes (Life-Threatening, Hospitalization, Other)
  Sender: FDA-Public Use
  Company Number: US-BAYER-200922627NA

PATIENT
  Age: 64 Year
  Sex: Female
  Weight: 44 kg

DRUGS (32)
  1. CLIMARA PRO [Suspect]
     Indication: MENOPAUSE
     Dosage: 0.045/0.01 MG
     Route: 062
     Dates: start: 20061108, end: 20070801
  2. ESTRATEST [Suspect]
     Indication: MENOPAUSE
     Dosage: UNIT DOSE: 1.25 MG
     Dates: start: 20001227, end: 20070801
  3. PROVERA [Suspect]
     Indication: MENOPAUSE
     Dosage: UNIT DOSE: 2.5 MG
     Dates: start: 19850101, end: 20070801
  4. COMBIPATCH [Suspect]
     Indication: MENOPAUSE
     Dosage: UNIT DOSE: 14 MG
     Dates: start: 20010706, end: 20050501
  5. ESTRACE [Suspect]
     Indication: MENOPAUSE
     Dosage: UNIT DOSE: 2 MG
     Dates: start: 19850101, end: 20040923
  6. DEPO-ESTRADIOL [Suspect]
     Indication: MENOPAUSE
     Dosage: 5.0
     Dates: start: 20010404, end: 20010601
  7. TESTIM [Suspect]
     Indication: MENOPAUSE
     Dosage: 1% 5GM
     Dates: start: 20060810, end: 20070801
  8. MPA (MEDROXYPROGESTERONE) [Suspect]
     Indication: MENOPAUSE
     Dosage: UNIT DOSE: 2.5 MG
     Dates: end: 20070326
  9. CARDIZEM [Concomitant]
     Indication: BLOOD PRESSURE MANAGEMENT
     Dates: start: 20000101
  10. INDERAL [Concomitant]
     Indication: CARDIAC DISORDER
     Dosage: TOTAL DAILY DOSE: 160 MG
     Route: 048
     Dates: start: 20030101
  11. ASPIRIN [Concomitant]
     Indication: CEREBROVASCULAR ACCIDENT PROPHYLAXIS
     Dates: start: 20060101
  12. DYAZIDE [Concomitant]
     Indication: MENIERE'S DISEASE
     Dosage: TOTAL DAILY DOSE: 50 MG
     Dates: start: 20030101
  13. PROMETHAZINE [Concomitant]
     Indication: NAUSEA
     Dates: start: 20030101
  14. LOVASTATIN [Concomitant]
     Indication: HYPERCHOLESTEROLAEMIA
     Dates: start: 20030101
  15. ACYCLOVIR [Concomitant]
     Indication: HERPES VIRUS INFECTION
     Dosage: TOTAL DAILY DOSE: 400 MG  UNIT DOSE: 400 MG
     Dates: start: 20080101
  16. CLONAZEPAM [Concomitant]
     Indication: ANXIETY
     Dates: start: 20070101
  17. OXYCODONE HCL [Concomitant]
     Indication: PAIN
     Dosage: AS USED: 5 MG
     Dates: start: 20090301
  18. OXYCODONE HCL [Concomitant]
     Dates: start: 20090301
  19. FENTANYL [Concomitant]
     Indication: PAIN
     Dates: start: 20090601
  20. TRAZODONE HCL [Concomitant]
     Indication: DEPRESSION
     Dates: start: 20080101
  21. ZOCOR [Concomitant]
  22. PHENERGAN [Concomitant]
     Dosage: TOTAL DAILY DOSE: 25 MG
     Route: 048
     Dates: start: 20090917
  23. KLONOPIN [Concomitant]
     Dosage: TOTAL DAILY DOSE: 3 MG
     Route: 048
     Dates: start: 20091103
  24. CARDIZEM [Concomitant]
     Dosage: TOTAL DAILY DOSE: 360 MG
     Route: 048
  25. PREVACID [Concomitant]
     Dosage: TOTAL DAILY DOSE: 30 MG  UNIT DOSE: 30 MG
  26. OXYCONTIN [Concomitant]
     Dosage: AS USED: 30 MG
  27. DURAGESIC-100 [Concomitant]
     Dosage: AS USED: 50 ?G
     Route: 062
  28. FLUCONAZOLE [Concomitant]
  29. NYSTATIN [Concomitant]
  30. DILTIAZ ER(CD) [Concomitant]
     Dates: start: 20050101
  31. SUCRALFATE [Concomitant]
     Dates: start: 20050101
  32. TRAMADOL HCL [Concomitant]
     Dates: start: 20050101

REACTIONS (4)
  - BREAST CANCER STAGE I [None]
  - DEPRESSION [None]
  - NON-HODGKIN'S LYMPHOMA STAGE I [None]
  - PAIN [None]
